FAERS Safety Report 11779210 (Version 1)
Quarter: 2015Q4

REPORT INFORMATION
  Report Type: Spontaneous
  Country: GB (occurrence: GB)
  Receive Date: 20151125
  Receipt Date: 20151125
  Transmission Date: 20160304
  Serious: Yes (Hospitalization, Other)
  Sender: FDA-Public Use
  Company Number: GB-BRISTOL-MYERS SQUIBB COMPANY-BMS-2015-080246

PATIENT
  Age: 71 Year
  Sex: Male

DRUGS (1)
  1. ELIQUIS [Suspect]
     Active Substance: APIXABAN
     Indication: CEREBROVASCULAR ACCIDENT PROPHYLAXIS
     Dosage: 5MG
     Route: 065
     Dates: start: 20140818

REACTIONS (4)
  - Dental care [Unknown]
  - Lung neoplasm malignant [Unknown]
  - Transient ischaemic attack [Unknown]
  - Lung operation [Unknown]

NARRATIVE: CASE EVENT DATE: 201504
